FAERS Safety Report 12662318 (Version 1)
Quarter: 2016Q3

REPORT INFORMATION
  Report Type: Report from Study
  Country: DE (occurrence: DE)
  Receive Date: 20160817
  Receipt Date: 20160817
  Transmission Date: 20161109
  Serious: Yes (Hospitalization, Other)
  Sender: FDA-Public Use
  Company Number: DE-ABBVIE-16K-062-1698754-00

PATIENT
  Sex: Male

DRUGS (5)
  1. LEFID [Concomitant]
     Indication: PRODUCT USED FOR UNKNOWN INDICATION
     Dates: end: 2014
  2. SIRUKUMAB [Concomitant]
     Active Substance: SIRUKUMAB
     Indication: PRODUCT USED FOR UNKNOWN INDICATION
  3. HUMIRA [Suspect]
     Active Substance: ADALIMUMAB
     Indication: RHEUMATIC DISORDER
     Route: 058
     Dates: start: 201208, end: 201404
  4. MTX [Concomitant]
     Active Substance: METHOTREXATE SODIUM
     Indication: PRODUCT USED FOR UNKNOWN INDICATION
  5. MTX [Concomitant]
     Active Substance: METHOTREXATE SODIUM

REACTIONS (9)
  - Benign neoplasm [Unknown]
  - Diabetes mellitus [Unknown]
  - Vein disorder [Unknown]
  - Thrombosis [Unknown]
  - Exostosis [Unknown]
  - Vasodilatation [Unknown]
  - Varicose vein [Unknown]
  - Back pain [Unknown]
  - Hepatic enzyme increased [Unknown]
